FAERS Safety Report 17476839 (Version 1)
Quarter: 2020Q1

REPORT INFORMATION
  Report Type: Report from Study
  Country: CA (occurrence: CA)
  Receive Date: 20200228
  Receipt Date: 20200228
  Transmission Date: 20200409
  Serious: Yes (Other)
  Sender: FDA-Public Use
  Company Number: CA-JNJFOC-20191101988

PATIENT
  Age: 36 Year
  Sex: Male
  Weight: 90 kg

DRUGS (1)
  1. STELARA [Suspect]
     Active Substance: USTEKINUMAB
     Indication: CROHN^S DISEASE
     Route: 058

REACTIONS (4)
  - Gastroenteritis viral [Recovering/Resolving]
  - Haemorrhoids [Recovering/Resolving]
  - Faeces soft [Recovering/Resolving]
  - Abdominal pain [Recovering/Resolving]

NARRATIVE: CASE EVENT DATE: 2019
